FAERS Safety Report 6079047-8 (Version None)
Quarter: 2009Q1

REPORT INFORMATION
  Report Type: 
  Country: None (occurrence: None)
  Receive Date: 20090216
  Receipt Date: 20090203
  Transmission Date: 20090719
  Serious: Yes (Death, Other)
  Sender: FDA-Public Use
  Company Number: PL-ROCHE-612708

PATIENT
  Age: 54 Year
  Sex: Female

DRUGS (6)
  1. CAPECITABINE [Suspect]
     Indication: COLORECTAL CANCER
     Dosage: ADMINISTERED ORALLY IN 2 DOSES DAILY FOR 14 DAYS, CYCLE REPEATED EVERY 21 DAYS
     Route: 048
     Dates: start: 20051201
  2. OXALIPLATIN [Suspect]
     Indication: COLORECTAL CANCER
     Dosage: BY 2 HOUR INFUSION ON THE FIRST DAY, CYCLE REPEATED EVERY 21 DAYS
     Route: 065
     Dates: start: 20051201
  3. IRINOTECAN HCL [Suspect]
     Indication: COLORECTAL CANCER
     Route: 065
     Dates: start: 20060501
  4. CALCIUM FOLINATE [Suspect]
     Indication: COLORECTAL CANCER
     Route: 065
     Dates: start: 20060501
  5. FLUOROURACIL [Suspect]
     Indication: COLORECTAL CANCER
     Route: 065
     Dates: start: 20060501
  6. CETUXIMAB [Concomitant]
     Dosage: FIRST DOSE WAS 400MG/M2, THEN 2580MG/M2 EVERY 7 DAYS
     Dates: start: 20060501

REACTIONS (4)
  - COLORECTAL CANCER [None]
  - DERMATITIS ACNEIFORM [None]
  - JUGULAR VEIN THROMBOSIS [None]
  - PALMAR-PLANTAR ERYTHRODYSAESTHESIA SYNDROME [None]
